FAERS Safety Report 4768125-9 (Version None)
Quarter: 2005Q3

REPORT INFORMATION
  Report Type: 
  Country: None (occurrence: None)
  Receive Date: 20050914
  Receipt Date: 20050727
  Transmission Date: 20060218
  Serious: Yes (Hospitalization)
  Sender: FDA-Public Use
  Company Number: FR-RB-1918-2005

PATIENT
  Age: 29 Year
  Sex: Male

DRUGS (5)
  1. BUPRENORPHINE HCL [Suspect]
     Indication: DRUG USE FOR UNKNOWN INDICATION
     Route: 055
  2. INTERFERON ALFA [Suspect]
     Indication: HEPATITIS C
     Dosage: DOSAGE UNKNOWN
     Route: 058
  3. RIBAVIRIN [Suspect]
     Indication: HEPATITIS C
     Dosage: DOSAGE UNKNOWN
     Route: 048
  4. CANNABIS [Suspect]
     Indication: DRUG ABUSER
     Dosage: UNKNOWN DOSAGE
     Route: 065
  5. COCAINE [Suspect]
     Indication: DRUG ABUSER
     Dosage: UNKNOWN DOSAGE
     Route: 065
     Dates: end: 20050501

REACTIONS (5)
  - CEREBROVASCULAR ACCIDENT [None]
  - CLONUS [None]
  - HYPERTRIGLYCERIDAEMIA [None]
  - INTENTIONAL MISUSE [None]
  - NUCLEAR MAGNETIC RESONANCE IMAGING BRAIN ABNORMAL [None]
